FAERS Safety Report 9245749 (Version 3)
Quarter: 2013Q4

REPORT INFORMATION
  Report Type: Spontaneous
  Country: JP (occurrence: JP)
  Receive Date: 20130422
  Receipt Date: 20131023
  Transmission Date: 20140711
  Serious: Yes (Other)
  Sender: FDA-Public Use
  Company Number: JP-ROCHE-1214366

PATIENT
  Age: 48 Year
  Sex: Female
  Weight: 59 kg

DRUGS (21)
  1. VESANOID [Suspect]
     Indication: ACUTE PROMYELOCYTIC LEUKAEMIA
     Route: 048
     Dates: start: 20121019
  2. INDERAL [Concomitant]
     Indication: TACHYCARDIA
     Route: 048
  3. DEPAS [Concomitant]
     Route: 048
  4. TAKEPRON [Concomitant]
     Indication: PROPHYLAXIS
     Route: 048
     Dates: start: 20121019
  5. CALONAL [Concomitant]
     Dosage: SINGLE USE
     Route: 048
     Dates: start: 20121019
  6. RECOMODULIN [Concomitant]
     Route: 041
     Dates: start: 20121019, end: 20121029
  7. CEFEPIME DIHYDROCHLORIDE [Concomitant]
     Route: 041
     Dates: start: 20121020, end: 20121102
  8. MYSLEE [Concomitant]
     Indication: INSOMNIA
     Route: 048
     Dates: start: 20121021
  9. MYCOSYST [Concomitant]
     Route: 048
     Dates: start: 20121021, end: 20121029
  10. TRAVELMIN [Concomitant]
     Dosage: UNCERTAIN DOSAGE AND SINGLE USE
     Route: 048
     Dates: start: 20121026
  11. ZYLORIC [Concomitant]
     Dosage: DOSAGE IS UNCERTAIN
     Route: 048
     Dates: start: 20121026, end: 20121031
  12. RAMOSETRON HYDROCHLORIDE [Concomitant]
     Route: 041
     Dates: start: 20121026, end: 20121028
  13. IDAMYCIN [Concomitant]
     Route: 041
     Dates: start: 20121026, end: 20121028
  14. CYLOCIDE [Concomitant]
     Route: 041
     Dates: start: 20121026, end: 20121101
  15. MAGLAX [Concomitant]
     Dosage: SINGLE USE
     Route: 048
     Dates: start: 20121028
  16. PURSENNID [Concomitant]
     Dosage: UNCERTAIN DOSAGE AND SINGLE USE
     Route: 048
     Dates: start: 20121028
  17. FUNGUARD [Concomitant]
     Route: 041
     Dates: start: 20121030, end: 20121108
  18. LAXOBERON [Concomitant]
     Route: 048
     Dates: start: 20121031
  19. ZOSYN [Concomitant]
     Route: 041
     Dates: start: 20121102, end: 20121108
  20. VENOGLOBULIN [Concomitant]
     Route: 041
     Dates: start: 20121106, end: 20121108
  21. FOLIAMIN [Concomitant]
     Route: 048
     Dates: start: 20121128

REACTIONS (4)
  - Acute febrile neutrophilic dermatosis [Recovered/Resolved]
  - Febrile neutropenia [Unknown]
  - Bone marrow failure [Unknown]
  - Insomnia [Unknown]
